FAERS Safety Report 7916946-3 (Version None)
Quarter: 2011Q4

REPORT INFORMATION
  Report Type: 
  Country: None (occurrence: None)
  Receive Date: 20111114
  Receipt Date: 20111022
  Transmission Date: 20120403
  Serious: Yes (Other)
  Sender: FDA-Public Use
  Company Number: FK201102283

PATIENT
  Age: 65 Year
  Sex: Male

DRUGS (3)
  1. OXALIPLATIN [Suspect]
     Indication: COLON CANCER STAGE III
     Dosage: 130 MG/M2
     Dates: start: 20080401
  2. CAPECITABINE [Suspect]
     Indication: COLON CANCER STAGE III
     Dosage: 2000 MG/M2
     Dates: start: 20080401
  3. FLUOROURACIL [Suspect]
     Indication: COLON CANCER STAGE III

REACTIONS (5)
  - PULMONARY FIBROSIS [None]
  - RESTRICTIVE PULMONARY DISEASE [None]
  - PULMONARY TOXICITY [None]
  - DIARRHOEA [None]
  - CREPITATIONS [None]
